FAERS Safety Report 21376792 (Version 1)
Quarter: 2022Q3

REPORT INFORMATION
  Report Type: Spontaneous
  Country: NZ (occurrence: None)
  Receive Date: 20220924
  Receipt Date: 20220924
  Transmission Date: 20221026
  Serious: Yes (Other)
  Sender: FDA-Public Use
  Company Number: None

PATIENT
  Age: 19 Year
  Sex: Female
  Weight: 70 kg

DRUGS (3)
  1. METOCLOPRAMIDE HYDROCHLORIDE [Suspect]
     Active Substance: METOCLOPRAMIDE HYDROCHLORIDE
     Indication: Nausea
     Dosage: OTHER QUANTITY : 1 TABLET(S)?FREQUENCY : AS NEEDED?
     Route: 048
  2. FLUOXETINE [Concomitant]
     Active Substance: FLUOXETINE HYDROCHLORIDE
  3. MAGNESIUM [Concomitant]
     Active Substance: MAGNESIUM

REACTIONS (8)
  - Akathisia [None]
  - Tremor [None]
  - Restlessness [None]
  - Tachyphrenia [None]
  - Agitation [None]
  - Formication [None]
  - Suicidal ideation [None]
  - Self-injurious ideation [None]

NARRATIVE: CASE EVENT DATE: 20220330
